FAERS Safety Report 15404280 (Version 1)
Quarter: 2018Q3

REPORT INFORMATION
  Report Type: Report from Study
  Country: US (occurrence: US)
  Receive Date: 20180919
  Receipt Date: 20180919
  Transmission Date: 20181010
  Serious: Yes (Other)
  Sender: FDA-Public Use
  Company Number: US-UCBSA-2018041318

PATIENT

DRUGS (2)
  1. LEVETIRACETAM. [Suspect]
     Active Substance: LEVETIRACETAM
     Dosage: HALVED , TAKING 2250 MG A DAY
  2. LEVETIRACETAM. [Suspect]
     Active Substance: LEVETIRACETAM
     Indication: SEIZURE
     Dosage: 5250 MG DAILY DOSE

REACTIONS (5)
  - Intentional product misuse [Unknown]
  - Drug dose omission [Unknown]
  - Anger [Unknown]
  - Generalised tonic-clonic seizure [Unknown]
  - Overdose [Unknown]
